FAERS Safety Report 10830185 (Version 1)
Quarter: 2015Q1

REPORT INFORMATION
  Report Type: Report from Study
  Country: US (occurrence: US)
  Receive Date: 20150219
  Receipt Date: 20150219
  Transmission Date: 20150721
  Serious: Yes (Other)
  Sender: FDA-Public Use
  Company Number: US-ABBVIE-14P-163-1188447-00

PATIENT
  Age: 26 Year
  Sex: Female

DRUGS (9)
  1. PAXIL [Concomitant]
     Active Substance: PAROXETINE HYDROCHLORIDE
     Indication: DEPRESSION
  2. GEODON [Concomitant]
     Active Substance: ZIPRASIDONE HYDROCHLORIDE\ZIPRASIDONE MESYLATE
     Indication: DEPRESSION
     Dates: end: 201208
  3. HUMIRA [Suspect]
     Active Substance: ADALIMUMAB
     Dosage: VARIES ABOUT 4-6 WEEKS OR PSORIASES FLARE
     Dates: start: 2013
  4. HUMIRA [Suspect]
     Active Substance: ADALIMUMAB
     Dosage: VARIES ABOUT 4-6 WEEKS OR PSORIASES FLARE
     Dates: end: 2013
  5. SEASONALE [Concomitant]
     Active Substance: ETHINYL ESTRADIOL\LEVONORGESTREL
     Indication: CONTRACEPTION
  6. GEODON [Concomitant]
     Active Substance: ZIPRASIDONE HYDROCHLORIDE\ZIPRASIDONE MESYLATE
     Dates: start: 201208
  7. HUMIRA [Suspect]
     Active Substance: ADALIMUMAB
     Dosage: VARIES
  8. HUMIRA [Suspect]
     Active Substance: ADALIMUMAB
     Dosage: VARIES
  9. HUMIRA [Suspect]
     Active Substance: ADALIMUMAB
     Indication: PSORIASIS
     Dosage: VARIES
     Dates: start: 200811, end: 201110

REACTIONS (10)
  - Ligament rupture [Unknown]
  - Infection [Not Recovered/Not Resolved]
  - Injection site erythema [Not Recovered/Not Resolved]
  - Psoriasis [Not Recovered/Not Resolved]
  - Expired product administered [Unknown]
  - Injection site warmth [Not Recovered/Not Resolved]
  - Streptococcal infection [Recovered/Resolved]
  - Sinus disorder [Recovered/Resolved]
  - Depression [Unknown]
  - Bronchitis [Recovered/Resolved]

NARRATIVE: CASE EVENT DATE: 200811
